FAERS Safety Report 16719869 (Version 1)
Quarter: 2019Q3

REPORT INFORMATION
  Report Type: Spontaneous
  Country: US (occurrence: US)
  Receive Date: 20190702
  Receipt Date: 20190702
  Transmission Date: 20191005
  Serious: Yes (Hospitalization)
  Sender: FDA-Public Use
  Company Number: None

PATIENT
  Age: 93 Year
  Sex: Female
  Weight: 61.69 kg

DRUGS (6)
  1. LISINOPRIL. [Concomitant]
     Active Substance: LISINOPRIL
  2. POTASSIUM [Concomitant]
     Active Substance: POTASSIUM
  3. LASIX [Concomitant]
     Active Substance: FUROSEMIDE
  4. ALDACTONE [Suspect]
     Active Substance: SPIRONOLACTONE
     Indication: CARDIAC FAILURE
     Dosage: ?          QUANTITY:0.5 DF DOSAGE FORM;OTHER FREQUENCY:MORNING;?
     Route: 048
     Dates: start: 20190509, end: 20190524
  5. COREG [Concomitant]
     Active Substance: CARVEDILOL
  6. ASPIRIN. [Concomitant]
     Active Substance: ASPIRIN

REACTIONS (5)
  - Fall [None]
  - Dizziness [None]
  - Pelvic fracture [None]
  - Urinary tract infection [None]
  - Somnolence [None]

NARRATIVE: CASE EVENT DATE: 20190521
